FAERS Safety Report 25329893 (Version 1)
Quarter: 2025Q2

REPORT INFORMATION
  Report Type: Spontaneous
  Country: US (occurrence: None)
  Receive Date: 20250519
  Receipt Date: 20250519
  Transmission Date: 20250717
  Serious: No
  Sender: AXSOME THERAPEUTICS, INC.
  Company Number: US-Axsome Therapeutics, Inc.-AXS202504-000631

PATIENT
  Age: 56 Year
  Sex: Female
  Weight: 65.77 kg

DRUGS (6)
  1. AUVELITY [Suspect]
     Active Substance: BUPROPION HYDROCHLORIDE\DEXTROMETHORPHAN HYDROBROMIDE
     Indication: Major depression
     Route: 065
  2. DESVENLAFAXINE ER [Concomitant]
     Active Substance: DESVENLAFAXINE SUCCINATE
     Indication: Product used for unknown indication
     Route: 065
  3. DESVENLAFAXINE ER [Concomitant]
     Active Substance: DESVENLAFAXINE SUCCINATE
     Route: 065
  4. DESVENLAFAXINE ER [Concomitant]
     Active Substance: DESVENLAFAXINE SUCCINATE
     Route: 065
  5. LIOTHYRONINE [Concomitant]
     Active Substance: LIOTHYRONINE
     Indication: Autoimmune disorder
     Route: 065
  6. LEVOTHYROXINE [Concomitant]
     Active Substance: LEVOTHYROXINE
     Indication: Autoimmune disorder
     Route: 048

REACTIONS (7)
  - Electric shock sensation [Unknown]
  - Bradykinesia [Unknown]
  - Emotional disorder [Unknown]
  - Nervousness [Unknown]
  - Product use issue [Unknown]
  - Therapy interrupted [Unknown]
  - Drug dose titration not performed [Unknown]
